FAERS Safety Report 22285079 (Version 2)
Quarter: 2023Q2

REPORT INFORMATION
  Report Type: Spontaneous
  Country: PL (occurrence: PL)
  Receive Date: 20230504
  Receipt Date: 20230515
  Transmission Date: 20230721
  Serious: Yes (Hospitalization)
  Sender: FDA-Public Use
  Company Number: PL-ELI_LILLY_AND_COMPANY-PL202304007741

PATIENT
  Age: 60 Year
  Sex: Female
  Weight: 49.5 kg

DRUGS (4)
  1. ZYPADHERA [Suspect]
     Active Substance: OLANZAPINE PAMOATE
     Indication: Product used for unknown indication
     Dosage: 300 MG, 2/M (EVERY 14 DAYS)
     Route: 065
     Dates: start: 2015
  2. ZYPADHERA [Suspect]
     Active Substance: OLANZAPINE PAMOATE
     Indication: Product used for unknown indication
     Dosage: 300 MG, 2/M (EVERY 14 DAYS)
     Route: 065
     Dates: start: 2015
  3. ZYPADHERA [Suspect]
     Active Substance: OLANZAPINE PAMOATE
     Indication: Product used for unknown indication
     Dosage: 300 MG, 2/M (EVERY 14 DAYS)
     Route: 065
     Dates: start: 2015
  4. LORAZEPAM [Concomitant]
     Active Substance: LORAZEPAM
     Indication: Product used for unknown indication
     Dosage: 1 MG, UNKNOWN
     Route: 048

REACTIONS (5)
  - Altered state of consciousness [Recovered/Resolved]
  - Illogical thinking [Recovered/Resolved]
  - Amnesia [Recovered/Resolved]
  - Post-injection delirium sedation syndrome [Recovered/Resolved]
  - Disorientation [Recovered/Resolved]

NARRATIVE: CASE EVENT DATE: 20230406
